FAERS Safety Report 8281632-X (Version None)
Quarter: 2012Q2

REPORT INFORMATION
  Report Type: 
  Country: None (occurrence: None)
  Receive Date: 20120413
  Receipt Date: 20120403
  Transmission Date: 20120825
  Serious: Yes (Hospitalization)
  Sender: FDA-Public Use
  Company Number: US-PFIZER INC-2009191213

PATIENT
  Sex: Male
  Weight: 63.04 kg

DRUGS (15)
  1. DOXORUBICIN HCL [Suspect]
     Indication: DIFFUSE LARGE B-CELL LYMPHOMA
     Dosage: 50 MG/M2, ON DAY 1 OF A 21-DAY CYCLE
     Route: 042
     Dates: start: 20090123, end: 20090313
  2. HYDROMORPHONE [Concomitant]
     Dosage: UNK
     Dates: start: 20090119
  3. MARINOL [Concomitant]
     Dosage: UNK
     Dates: start: 20090113
  4. PREDNISONE TAB [Suspect]
     Indication: DIFFUSE LARGE B-CELL LYMPHOMA
     Dosage: 100 MG, ON DAYS 1 THROUGH 5 OF A 21-DAY CYCLE
     Route: 048
     Dates: start: 20090123, end: 20090313
  5. RITUXIMAB [Suspect]
     Indication: DIFFUSE LARGE B-CELL LYMPHOMA
     Dosage: 375 MG/M2, ON DAY 1 OF A 21-DAY CYCLE
     Route: 042
     Dates: start: 20090123, end: 20090313
  6. ENZASTAURINE [Suspect]
     Indication: DIFFUSE LARGE B-CELL LYMPHOMA
     Dosage: 1125 MG, LOADING DOSE, ON DAY 2
     Route: 048
     Dates: start: 20090124, end: 20090124
  7. MEGESTROL [Concomitant]
     Dosage: UNK
     Dates: start: 20090306
  8. PREDNISONE [Concomitant]
     Dosage: UNK
     Dates: start: 20090106
  9. VINCRISTINE [Suspect]
     Indication: DIFFUSE LARGE B-CELL LYMPHOMA
     Dosage: 1.4 MG/M2, ON DAY 1 OF A 21-DAY CYCLE
     Route: 042
     Dates: start: 20090123, end: 20090313
  10. FENTANYL [Concomitant]
     Dosage: UNK
     Route: 062
     Dates: start: 20090320
  11. ZOFRAN [Concomitant]
     Dosage: UNK
     Dates: start: 20090127
  12. CYCLOPHOSPHAMIDE [Suspect]
     Indication: DIFFUSE LARGE B-CELL LYMPHOMA
     Dosage: 750 MG/M2, ON DAY 1 OF A 21-DAY CYCLE
     Route: 042
     Dates: start: 20090123, end: 20090313
  13. ENZASTAURINE [Suspect]
     Dosage: 500 MG, DAILY
     Route: 048
     Dates: start: 20090125, end: 20090319
  14. OMEPRAZOLE [Concomitant]
     Dosage: UNK
     Dates: start: 20090127
  15. IRON [Concomitant]
     Dosage: UNK
     Dates: start: 20090123

REACTIONS (24)
  - PNEUMONIA [None]
  - PLEURAL EFFUSION [None]
  - FATIGUE [None]
  - BLOOD SODIUM DECREASED [None]
  - DIZZINESS [None]
  - HYPOPHAGIA [None]
  - PLATELET COUNT DECREASED [None]
  - ATELECTASIS [None]
  - NEUTROPENIA [None]
  - BLOOD POTASSIUM DECREASED [None]
  - LOBAR PNEUMONIA [None]
  - ORAL CANDIDIASIS [None]
  - WHITE BLOOD CELL COUNT DECREASED [None]
  - SUPRAVENTRICULAR TACHYCARDIA [None]
  - TOXICITY TO VARIOUS AGENTS [None]
  - HYPOCALCAEMIA [None]
  - DEHYDRATION [None]
  - HEART RATE INCREASED [None]
  - MALAISE [None]
  - PULMONARY OEDEMA [None]
  - CARDIOMEGALY [None]
  - ANAEMIA [None]
  - HYPOTENSION [None]
  - ESCHERICHIA TEST POSITIVE [None]
